FAERS Safety Report 4313879-9 (Version None)
Quarter: 2004Q1

REPORT INFORMATION
  Report Type: 
  Country: None (occurrence: None)
  Receive Date: 20040305
  Receipt Date: 20031121
  Transmission Date: 20041129
  Serious: Yes (Other)
  Sender: FDA-Public Use
  Company Number: USA-2003-0011210

PATIENT
  Sex: Female

DRUGS (4)
  1. CHIROCAINE [Suspect]
     Indication: ANALGESIC EFFECT
     Dosage: 10 ML, SINGLE, EPIDURAL
     Route: 008
     Dates: start: 20031118, end: 20031118
  2. CLONIDINE [Concomitant]
  3. METHYLPREDNISOLONE [Concomitant]
  4. MIDAZOLAM HCL [Concomitant]

REACTIONS (4)
  - ANAESTHETIC COMPLICATION NEUROLOGICAL [None]
  - HYPOTENSION [None]
  - MOTOR DYSFUNCTION [None]
  - SENSORY LOSS [None]
